FAERS Safety Report 22007582 (Version 1)
Quarter: 2023Q1

REPORT INFORMATION
  Report Type: Spontaneous
  Country: FR (occurrence: FR)
  Receive Date: 20230218
  Receipt Date: 20230218
  Transmission Date: 20230417
  Serious: Yes (Other)
  Sender: FDA-Public Use
  Company Number: FR-AFSSAPS-AVNT2023000149

PATIENT
  Age: 58 Year
  Sex: Male

DRUGS (1)
  1. OXYCODONE [Suspect]
     Active Substance: OXYCODONE
     Indication: Product used for unknown indication
     Dosage: AT LEAST 20 MG/D (2 CPS 5 MG LP+2 CPS 5MG IR/D)
     Route: 048

REACTIONS (1)
  - Drug use disorder [Not Recovered/Not Resolved]
